FAERS Safety Report 21707811 (Version 2)
Quarter: 2022Q4

REPORT INFORMATION
  Report Type: Report from Study
  Country: CA (occurrence: CA)
  Receive Date: 20221209
  Receipt Date: 20221213
  Transmission Date: 20230113
  Serious: Yes (Hospitalization, Other)
  Sender: FDA-Public Use
  Company Number: CA-009507513-1904CAN006316

PATIENT
  Age: 65 Year
  Sex: Female

DRUGS (86)
  1. FOSAMAX [Suspect]
     Active Substance: ALENDRONATE SODIUM
     Indication: Product used for unknown indication
     Dosage: 1 DF, UNK
     Route: 048
  2. MOMETASONE FUROATE [Suspect]
     Active Substance: MOMETASONE FUROATE
     Dosage: UNK
     Route: 065
  3. XOLAIR [Suspect]
     Active Substance: OMALIZUMAB
     Indication: Asthma
     Dosage: 225 MILLIGRAM, BIW (DOSAGE FORM: POWDER AND SOLVENT FOR SOLUTION FOR INJECTION)
     Route: 058
     Dates: start: 20181228
  4. XOLAIR [Suspect]
     Active Substance: OMALIZUMAB
     Dosage: 225 MILLIGRAM, BIW
     Route: 058
     Dates: start: 20180419
  5. XOLAIR [Suspect]
     Active Substance: OMALIZUMAB
     Dosage: 225 MILLIGRAM, BIW
     Route: 058
     Dates: start: 20190514
  6. XOLAIR [Suspect]
     Active Substance: OMALIZUMAB
     Dosage: 225 MILLIGRAM, BIW
     Route: 058
     Dates: start: 20190430
  7. XOLAIR [Suspect]
     Active Substance: OMALIZUMAB
     Dosage: UNK
     Route: 058
     Dates: start: 20180712
  8. XOLAIR [Suspect]
     Active Substance: OMALIZUMAB
     Dosage: 225 MILLIGRAM, BIW
     Route: 058
     Dates: start: 20171201
  9. XOLAIR [Suspect]
     Active Substance: OMALIZUMAB
     Dosage: 225 MILLIGRAM, BIW
     Route: 058
     Dates: start: 20200303
  10. XOLAIR [Suspect]
     Active Substance: OMALIZUMAB
     Dosage: 225 MILLIGRAM, BIW
     Route: 058
     Dates: start: 20180629
  11. XOLAIR [Suspect]
     Active Substance: OMALIZUMAB
     Dosage: 225 MILLIGRAM, BIW
     Route: 058
     Dates: start: 20190709
  12. XOLAIR [Suspect]
     Active Substance: OMALIZUMAB
     Dosage: 225 MILLIGRAM, BIW
     Route: 058
     Dates: start: 20190723
  13. XOLAIR [Suspect]
     Active Substance: OMALIZUMAB
     Dosage: 225 MILLIGRAM, BIW
     Route: 058
     Dates: start: 20180517
  14. XOLAIR [Suspect]
     Active Substance: OMALIZUMAB
     Dosage: 225 MILLIGRAM, BIW
     Route: 058
     Dates: start: 20191015
  15. XOLAIR [Suspect]
     Active Substance: OMALIZUMAB
     Dosage: 225 MILLIGRAM, BIW
     Route: 058
     Dates: start: 20171130
  16. XOLAIR [Suspect]
     Active Substance: OMALIZUMAB
     Dosage: UNK
     Route: 058
     Dates: start: 20171228
  17. XOLAIR [Suspect]
     Active Substance: OMALIZUMAB
     Dosage: 225 MILLIGRAM, BIW
     Route: 058
  18. XOLAIR [Suspect]
     Active Substance: OMALIZUMAB
     Dosage: 225 MILLIGRAM, BIW
     Route: 058
     Dates: start: 20200512
  19. XOLAIR [Suspect]
     Active Substance: OMALIZUMAB
     Dosage: 225 MILLIGRAM, BIW
     Route: 058
     Dates: start: 20180614
  20. XOLAIR [Suspect]
     Active Substance: OMALIZUMAB
     Dosage: UNK
     Route: 058
     Dates: start: 201801
  21. XOLAIR [Suspect]
     Active Substance: OMALIZUMAB
     Dosage: 225 MILLIGRAM, BIW
     Route: 058
     Dates: start: 20181129
  22. XOLAIR [Suspect]
     Active Substance: OMALIZUMAB
     Dosage: 225 MILLIGRAM, BIW
     Route: 058
     Dates: start: 2020
  23. XOLAIR [Suspect]
     Active Substance: OMALIZUMAB
     Dosage: UNK
     Route: 058
     Dates: start: 20180125
  24. XOLAIR [Suspect]
     Active Substance: OMALIZUMAB
     Dosage: 225 MILLIGRAM, QOW
     Route: 065
  25. ATORVASTATIN [Suspect]
     Active Substance: ATORVASTATIN
     Indication: Product used for unknown indication
     Dosage: 1 DOSAGE FORM,  1 EVERY 1 DAY (QD)
     Route: 065
  26. METFORMIN HYDROCHLORIDE [Suspect]
     Active Substance: METFORMIN HYDROCHLORIDE
     Indication: Product used for unknown indication
     Dosage: 1000 MG, 2 EVERY 1 DAY (BID)
     Route: 048
  27. METFORMIN HYDROCHLORIDE [Suspect]
     Active Substance: METFORMIN HYDROCHLORIDE
     Dosage: UNK, 2 EVERY 1 DAYS (BID)
     Route: 048
  28. PREDNISONE [Suspect]
     Active Substance: PREDNISONE
     Indication: Asthma
     Dosage: 50 MILLIGRAM, QD (5 DAYS)
     Route: 048
  29. PREDNISONE [Suspect]
     Active Substance: PREDNISONE
     Dosage: 15 MILLIGRAM, QD
     Route: 065
     Dates: start: 20200316
  30. PREDNISONE [Suspect]
     Active Substance: PREDNISONE
     Dosage: 17.5 MILLIGRAM, QD
     Route: 048
     Dates: start: 20180111
  31. PREDNISONE [Suspect]
     Active Substance: PREDNISONE
     Dosage: 35 MILLIGRAM, QD
     Route: 048
     Dates: start: 2013
  32. PREDNISONE [Suspect]
     Active Substance: PREDNISONE
     Dosage: 10 MILLIGRAM, 1 EVERY 1 DAY (QD); DOSAGE FORM: NOT SPECIFIED
     Route: 065
     Dates: start: 20200623
  33. PREDNISONE [Suspect]
     Active Substance: PREDNISONE
     Dosage: 15 MILLIGRAM, 1 EVERY 1 DAY (QD); DOSAGE FORM: NOT SPECIFIED
     Route: 065
  34. PREDNISONE [Suspect]
     Active Substance: PREDNISONE
     Dosage: 10 MILLIGRAM, QD
     Route: 065
  35. PREDNISONE [Suspect]
     Active Substance: PREDNISONE
     Dosage: 50 MILLIGRAM, 1 EVERY 1 DAY (QD); DOSAGE FORM: NOT SPECIFIED
     Route: 048
  36. PREDNISONE [Suspect]
     Active Substance: PREDNISONE
     Dosage: 35 MILLIGRAM, 1 EVERY 1 DAY (QD); DOSAGE FORM: NOT SPECIFIED
     Route: 048
  37. PREDNISONE [Suspect]
     Active Substance: PREDNISONE
     Dosage: 17.5 MILLIGRAM, 1 EVERY 1 DAY (QD); DOSAGE FORM: NOT SPECIFIED
     Route: 048
  38. PREDNISONE [Suspect]
     Active Substance: PREDNISONE
     Dosage: UNK
  39. CLONAZEPAM [Suspect]
     Active Substance: CLONAZEPAM
     Indication: Product used for unknown indication
     Dosage: 1 DOSAGE FORM, 3 EVERY 1 DAY (TID)
     Route: 065
  40. DILTIAZEM [Suspect]
     Active Substance: DILTIAZEM
     Indication: Product used for unknown indication
     Dosage: 1 DOSAGE FORM, 1 EVERY 1 DAYS (QD)
     Route: 048
  41. ACLIDINIUM BROMIDE [Concomitant]
     Active Substance: ACLIDINIUM BROMIDE
     Indication: Asthma
     Dosage: 2 DF BID
     Route: 055
  42. ACLIDINIUM BROMIDE [Concomitant]
     Active Substance: ACLIDINIUM BROMIDE
     Indication: Asthma
     Dosage: 2 DOSAGE FORM, 2 EVERY 1 DAYS (BID)
  43. LASIX [Concomitant]
     Active Substance: FUROSEMIDE
     Indication: Product used for unknown indication
     Dosage: 1 DF, QD (20 MG) (ALSO REPORTED AS DOSAFE FORM NOT SPECIFIED)
     Route: 048
  44. LASIX [Concomitant]
     Active Substance: FUROSEMIDE
     Dosage: 60 MILLIGRAM; 1 EVERY 1 DAY (QD) (ALSO REPORTED AS DOSAGE FORM NOT SPECIFIED)
     Route: 065
  45. LASIX [Concomitant]
     Active Substance: FUROSEMIDE
     Dosage: 1 DOSAGE FORM; 1 EVERY 1 DAY (QD)
     Route: 048
  46. VENTOLIN [Concomitant]
     Active Substance: ALBUTEROL SULFATE
     Indication: Asthma
     Dosage: 4 DF UNK
     Route: 055
     Dates: start: 2010
  47. VENTOLIN [Concomitant]
     Active Substance: ALBUTEROL SULFATE
     Indication: Asthma
     Dosage: 4 DOSAGE FORM
  48. ZENHALE [Concomitant]
     Active Substance: FORMOTEROL FUMARATE\MOMETASONE FUROATE
     Indication: Asthma
     Dosage: 2 DOSAGE FORM, QID
     Route: 055
     Dates: start: 201703
  49. ZENHALE [Concomitant]
     Active Substance: FORMOTEROL FUMARATE\MOMETASONE FUROATE
     Dosage: 2 DOSAGE FORM, QID
     Route: 055
     Dates: start: 201703
  50. ZENHALE [Concomitant]
     Active Substance: FORMOTEROL FUMARATE\MOMETASONE FUROATE
     Dosage: 2 DOSAGE FORM, 4 EVERY 1 DAYS (QID)
  51. KEFLEX [Concomitant]
     Active Substance: CEPHALEXIN
     Indication: Product used for unknown indication
     Dosage: UNK
     Route: 065
  52. INSULIN PORK\INSULIN PURIFIED PORK [Concomitant]
     Active Substance: INSULIN PORK\INSULIN PURIFIED PORK
     Indication: Product used for unknown indication
     Dosage: UNK (UP FROM 14 TO 24UNITS DAILY)
     Route: 065
  53. INSULIN PORK\INSULIN PURIFIED PORK [Concomitant]
     Active Substance: INSULIN PORK\INSULIN PURIFIED PORK
     Dosage: UNK
     Route: 065
  54. ZINC [Suspect]
     Active Substance: ZINC
     Dosage: UNK
     Route: 065
  55. IODINE [Suspect]
     Active Substance: IODINE
     Dosage: UNK
     Route: 065
  56. THEOPHYLLINE [Suspect]
     Active Substance: THEOPHYLLINE
     Dosage: UNK
     Route: 065
  57. PIPERACILLIN SODIUM\TAZOBACTAM SODIUM [Concomitant]
     Active Substance: PIPERACILLIN SODIUM\TAZOBACTAM SODIUM
     Dosage: UNK
     Route: 065
  58. ACLIDINIUM BROMIDE [Concomitant]
     Active Substance: ACLIDINIUM BROMIDE
     Indication: Asthma
     Dosage: 2 DF, QD
     Route: 065
  59. POTASSIUM [Concomitant]
     Active Substance: POTASSIUM
     Indication: Product used for unknown indication
     Dosage: UNK
     Route: 065
  60. ISOPHANE INSULIN [Concomitant]
     Active Substance: INSULIN NOS
     Indication: Product used for unknown indication
     Dosage: UNK
     Route: 065
  61. FOSAMAX [Concomitant]
     Active Substance: ALENDRONATE SODIUM
     Dosage: UNK
     Route: 065
  62. ALBUTEROL [Concomitant]
     Active Substance: ALBUTEROL
     Dosage: UNK
     Route: 065
  63. ALBUTEROL [Concomitant]
     Active Substance: ALBUTEROL
     Dosage: UNK
     Route: 065
  64. FUROSEMIDE [Concomitant]
     Active Substance: FUROSEMIDE
     Dosage: UNK
     Route: 065
  65. FUROSEMIDE [Concomitant]
     Active Substance: FUROSEMIDE
     Dosage: UNK
     Route: 065
  66. OMALIZUMAB [Suspect]
     Active Substance: OMALIZUMAB
     Indication: Product used for unknown indication
     Dosage: 225 MILLIGRAM, BIW
     Route: 058
  67. OMALIZUMAB [Suspect]
     Active Substance: OMALIZUMAB
     Indication: Asthma
     Dosage: 225 MILLIGRAM, BIW
     Route: 058
  68. OMALIZUMAB [Suspect]
     Active Substance: OMALIZUMAB
     Dosage: 225 MILLIGRAM, BIW
     Route: 058
  69. OMALIZUMAB [Suspect]
     Active Substance: OMALIZUMAB
     Dosage: 225 MILLIGRAM, BIW
     Route: 058
  70. OMALIZUMAB [Suspect]
     Active Substance: OMALIZUMAB
     Dosage: 225 MILLIGRAM, BIW
     Route: 058
  71. OMALIZUMAB [Suspect]
     Active Substance: OMALIZUMAB
     Dosage: 225 MILLIGRAM, BIW
     Route: 058
  72. OMALIZUMAB [Suspect]
     Active Substance: OMALIZUMAB
     Dosage: 225 MILLIGRAM, BIW
     Route: 058
  73. OMALIZUMAB [Suspect]
     Active Substance: OMALIZUMAB
     Dosage: 225 MILLIGRAM, BIW
     Route: 058
  74. OMALIZUMAB [Suspect]
     Active Substance: OMALIZUMAB
     Dosage: UNK
     Route: 058
  75. OMALIZUMAB [Suspect]
     Active Substance: OMALIZUMAB
     Dosage: UNK
     Route: 058
  76. OMALIZUMAB [Suspect]
     Active Substance: OMALIZUMAB
     Dosage: UNK
     Route: 058
  77. OMALIZUMAB [Suspect]
     Active Substance: OMALIZUMAB
     Dosage: 225 MILLIGRAM, BIW
     Route: 058
  78. OMALIZUMAB [Suspect]
     Active Substance: OMALIZUMAB
     Dosage: 225 MILLIGRAM, BIW
     Route: 058
  79. OMALIZUMAB [Suspect]
     Active Substance: OMALIZUMAB
     Dosage: 225 MILLIGRAM, BIW
     Route: 058
  80. OMALIZUMAB [Suspect]
     Active Substance: OMALIZUMAB
     Dosage: 225 MILLIGRAM, BIW
     Route: 058
  81. OMALIZUMAB [Suspect]
     Active Substance: OMALIZUMAB
     Dosage: 225 MILLIGRAM, BIW
     Route: 058
  82. OMALIZUMAB [Suspect]
     Active Substance: OMALIZUMAB
     Dosage: 225 MILLIGRAM, BIW
     Route: 058
  83. OMALIZUMAB [Suspect]
     Active Substance: OMALIZUMAB
     Dosage: 225 MILLIGRAM, BIW
     Route: 058
  84. OMALIZUMAB [Suspect]
     Active Substance: OMALIZUMAB
     Dosage: 225 MILLIGRAM, BIW
     Route: 058
  85. OMALIZUMAB [Suspect]
     Active Substance: OMALIZUMAB
     Dosage: UNK
     Route: 058
  86. OMALIZUMAB [Suspect]
     Active Substance: OMALIZUMAB
     Dosage: 225 MILLIGRAM, BIW
     Route: 058

REACTIONS (130)
  - Migraine [Unknown]
  - Chills [Unknown]
  - Hemiparaesthesia [Recovered/Resolved]
  - Influenza [Unknown]
  - Sinusitis [Unknown]
  - Bronchopulmonary aspergillosis allergic [Unknown]
  - Haemoglobin decreased [Not Recovered/Not Resolved]
  - Blood urine present [Unknown]
  - Cellulitis [Not Recovered/Not Resolved]
  - Haematuria [Not Recovered/Not Resolved]
  - Pollakiuria [Not Recovered/Not Resolved]
  - Myalgia [Unknown]
  - Animal scratch [Unknown]
  - Hypoaesthesia oral [Not Recovered/Not Resolved]
  - Myopathy [Unknown]
  - Nephrolithiasis [Not Recovered/Not Resolved]
  - Procedural pain [Recovering/Resolving]
  - Panic attack [Not Recovered/Not Resolved]
  - Body temperature increased [Not Recovered/Not Resolved]
  - Oropharyngeal pain [Not Recovered/Not Resolved]
  - Blood pressure systolic increased [Unknown]
  - Incorrect dose administered [Not Recovered/Not Resolved]
  - Gait disturbance [Not Recovered/Not Resolved]
  - Sinus disorder [Not Recovered/Not Resolved]
  - Blister [Not Recovered/Not Resolved]
  - Pneumonia [Recovering/Resolving]
  - Obstructive airways disorder [Not Recovered/Not Resolved]
  - Injection site pain [Not Recovered/Not Resolved]
  - Nasal polyps [Not Recovered/Not Resolved]
  - Skin laceration [Not Recovered/Not Resolved]
  - Bladder pain [Unknown]
  - Dysarthria [Recovered/Resolved]
  - Back pain [Unknown]
  - Ear pain [Recovering/Resolving]
  - Dysuria [Not Recovered/Not Resolved]
  - Arthralgia [Not Recovered/Not Resolved]
  - Wound complication [Not Recovered/Not Resolved]
  - Diarrhoea [Not Recovered/Not Resolved]
  - Muscular weakness [Not Recovered/Not Resolved]
  - Syncope [Recovered/Resolved]
  - Pyrexia [Not Recovered/Not Resolved]
  - Abdominal pain [Not Recovered/Not Resolved]
  - Burning sensation [Not Recovered/Not Resolved]
  - Polymyalgia rheumatica [Not Recovered/Not Resolved]
  - Blood iron decreased [Unknown]
  - Hypokinesia [Not Recovered/Not Resolved]
  - Paranasal sinus discomfort [Not Recovered/Not Resolved]
  - Tunnel vision [Not Recovered/Not Resolved]
  - Alveolar osteitis [Recovering/Resolving]
  - Joint injury [Not Recovered/Not Resolved]
  - Cough [Recovered/Resolved]
  - Cardiac failure [Recovering/Resolving]
  - Rales [Not Recovered/Not Resolved]
  - Sinus pain [Not Recovered/Not Resolved]
  - Influenza like illness [Not Recovered/Not Resolved]
  - Balance disorder [Recovered/Resolved]
  - Decreased appetite [Not Recovered/Not Resolved]
  - Pain in extremity [Not Recovered/Not Resolved]
  - Heart rate increased [Not Recovered/Not Resolved]
  - Abdominal distension [Not Recovered/Not Resolved]
  - Fall [Not Recovered/Not Resolved]
  - Limb injury [Recovering/Resolving]
  - Lower respiratory tract infection [Recovering/Resolving]
  - Wound secretion [Not Recovered/Not Resolved]
  - Movement disorder [Not Recovered/Not Resolved]
  - Urinary tract discomfort [Not Recovered/Not Resolved]
  - Pain [Not Recovered/Not Resolved]
  - Feeling cold [Not Recovered/Not Resolved]
  - Bronchiectasis [Recovering/Resolving]
  - Drug dependence [Not Recovered/Not Resolved]
  - Bronchitis [Not Recovered/Not Resolved]
  - Hypoacusis [Not Recovered/Not Resolved]
  - Muscle spasms [Not Recovered/Not Resolved]
  - Dyspnoea [Recovered/Resolved]
  - Urinary tract infection [Not Recovered/Not Resolved]
  - Ear congestion [Not Recovered/Not Resolved]
  - Peripheral swelling [Recovered/Resolved]
  - Oedema [Recovered/Resolved]
  - Chills [Unknown]
  - Haemoglobin decreased [Unknown]
  - Body temperature increased [Unknown]
  - Pneumonia [Not Recovered/Not Resolved]
  - Obstructive airways disorder [Unknown]
  - Diarrhoea [Not Recovered/Not Resolved]
  - Pyrexia [Unknown]
  - Blood iron decreased [Unknown]
  - Cough [Unknown]
  - Cardiac failure [Unknown]
  - Heart rate increased [Unknown]
  - Lower respiratory tract infection [Unknown]
  - Pain [Not Recovered/Not Resolved]
  - Bronchiectasis [Unknown]
  - Drug dependence [Unknown]
  - Bronchitis [Unknown]
  - Peripheral swelling [Unknown]
  - Pollakiuria [Not Recovered/Not Resolved]
  - Haematuria [Not Recovered/Not Resolved]
  - Gait disturbance [Not Recovered/Not Resolved]
  - Panic attack [Not Recovered/Not Resolved]
  - Procedural pain [Not Recovered/Not Resolved]
  - Incorrect dose administered [Unknown]
  - Joint injury [Not Recovered/Not Resolved]
  - Skin laceration [Not Recovered/Not Resolved]
  - Pneumonia [Unknown]
  - Back pain [Not Recovered/Not Resolved]
  - Malaise [Unknown]
  - Illness [Unknown]
  - Migraine [Not Recovered/Not Resolved]
  - Decreased appetite [Not Recovered/Not Resolved]
  - Hypoaesthesia oral [Not Recovered/Not Resolved]
  - Polymyalgia rheumatica [Not Recovered/Not Resolved]
  - Arthralgia [Not Recovered/Not Resolved]
  - Calculus urinary [Unknown]
  - Burning sensation [Not Recovered/Not Resolved]
  - Bladder pain [Not Recovered/Not Resolved]
  - Oedema [Not Recovered/Not Resolved]
  - Nasal polyps [Not Recovered/Not Resolved]
  - Blood pressure increased [Unknown]
  - Pseudomonas infection [Unknown]
  - Pyelonephritis [Unknown]
  - Seizure [Unknown]
  - Herpes zoster [Unknown]
  - Unevaluable event [Unknown]
  - Product dose omission issue [Unknown]
  - Rales [Not Recovered/Not Resolved]
  - Muscle spasms [Not Recovered/Not Resolved]
  - Depression [Unknown]
  - Bronchiectasis [Not Recovered/Not Resolved]
  - Alveolar osteitis [Not Recovered/Not Resolved]
  - Wrist fracture [Unknown]

NARRATIVE: CASE EVENT DATE: 20171001
